FAERS Safety Report 7481316-1 (Version None)
Quarter: 2011Q2

REPORT INFORMATION
  Report Type: 
  Country: None (occurrence: None)
  Receive Date: 20110512
  Receipt Date: 20110512
  Transmission Date: 20111010
  Serious: Yes (Other)
  Sender: FDA-Public Use
  Company Number: None

PATIENT
  Age: 19 Year
  Sex: Male
  Weight: 54.2 kg

DRUGS (8)
  1. AUGMENTIN [Concomitant]
  2. MESALAMINE [Concomitant]
  3. BACTRIM DS [Concomitant]
  4. POSACONAZOLE [Concomitant]
  5. PROMETHAZINE [Suspect]
     Indication: NAUSEA
     Dosage: 25MG ONE DOSE
  6. OMEPRAZOLE [Concomitant]
  7. LEVETIRACETAM [Concomitant]
  8. PREDNISONE [Concomitant]

REACTIONS (3)
  - HYPERTONIA [None]
  - DISORIENTATION [None]
  - UNRESPONSIVE TO STIMULI [None]
